FAERS Safety Report 5904207-3 (Version None)
Quarter: 2008Q3

REPORT INFORMATION
  Report Type: 
  Country: None (occurrence: None)
  Receive Date: 20080930
  Receipt Date: 20080930
  Transmission Date: 20090109
  Serious: Yes (Other)
  Sender: FDA-Public Use
  Company Number: None

PATIENT
  Age: 20 Year
  Sex: Male
  Weight: 81.6475 kg

DRUGS (2)
  1. LAMOTRIGINE [Suspect]
     Indication: ATTENTION DEFICIT/HYPERACTIVITY DISORDER
     Dosage: 150MG QD PO
     Route: 048
     Dates: start: 20070830, end: 20080923
  2. LAMOTRIGINE [Suspect]
     Indication: BIPOLAR II DISORDER
     Dosage: 150MG QD PO
     Route: 048
     Dates: start: 20070830, end: 20080923

REACTIONS (5)
  - ABNORMAL BEHAVIOUR [None]
  - ANGER [None]
  - CONDITION AGGRAVATED [None]
  - DEPRESSION [None]
  - THERAPEUTIC RESPONSE UNEXPECTED WITH DRUG SUBSTITUTION [None]
